FAERS Safety Report 8840264 (Version 1)
Quarter: 2012Q4

REPORT INFORMATION
  Report Type: 
  Country: CN (occurrence: CN)
  Receive Date: 20121015
  Receipt Date: 20121015
  Transmission Date: 20130627
  Serious: Yes (Other)
  Sender: FDA-Public Use
  Company Number: CN-BAYER-2012-105952

PATIENT
  Age: 61 Year
  Sex: Male
  Weight: 60 kg

DRUGS (1)
  1. MOXIFLOXACIN IV [Suspect]
     Indication: PNEUMONIA
     Dosage: 0.4 g, QD
     Route: 042
     Dates: start: 20111116, end: 20111116

REACTIONS (1)
  - Epilepsy [Recovered/Resolved]
